FAERS Safety Report 22377334 (Version 1)
Quarter: 2023Q2

REPORT INFORMATION
  Report Type: Spontaneous
  Country: US (occurrence: US)
  Receive Date: 20230529
  Receipt Date: 20230529
  Transmission Date: 20230721
  Serious: Yes (Hospitalization, Other)
  Sender: FDA-Public Use
  Company Number: US-SA-2023SA157081

PATIENT
  Age: 75 Year
  Sex: Female

DRUGS (2)
  1. CLOPIDOGREL BISULFATE [Suspect]
     Active Substance: CLOPIDOGREL BISULFATE
     Indication: Acute coronary syndrome
  2. ASPIRIN [Suspect]
     Active Substance: ASPIRIN
     Indication: Acute coronary syndrome

REACTIONS (8)
  - Necrotising oesophagitis [Unknown]
  - Oesophageal injury [Unknown]
  - Anaemia [Unknown]
  - Melaena [Unknown]
  - Haemodynamic instability [Unknown]
  - Mucosal discolouration [Unknown]
  - Gastric ulcer [Unknown]
  - Duodenal ulcer [Unknown]
